FAERS Safety Report 6994117-5 (Version None)
Quarter: 2010Q3

REPORT INFORMATION
  Report Type: 
  Country: None (occurrence: None)
  Receive Date: 20100917
  Receipt Date: 20080516
  Transmission Date: 20110219
  Serious: Yes (Other)
  Sender: FDA-Public Use
  Company Number: US-ASTRAZENECA-2006UW27736

PATIENT
  Age: 24 Year
  Sex: Female
  Weight: 128.8 kg

DRUGS (18)
  1. SEROQUEL [Suspect]
     Indication: ANXIETY
     Route: 048
     Dates: start: 20000101, end: 20010101
  2. SEROQUEL [Suspect]
     Indication: DEPRESSION
     Route: 048
     Dates: start: 20000101, end: 20010101
  3. SEROQUEL [Suspect]
     Dosage: 300-800 MG
     Route: 048
     Dates: start: 20000411
  4. SEROQUEL [Suspect]
     Dosage: 300-800 MG
     Route: 048
     Dates: start: 20000411
  5. ABILIFY [Concomitant]
  6. GEODON [Concomitant]
     Dates: start: 20010101
  7. RISPERDAL [Concomitant]
  8. ZYPREXA [Concomitant]
     Dates: start: 20040101
  9. LITHIUM CARBONATE [Concomitant]
  10. GABITRIL [Concomitant]
  11. NAPROSYN [Concomitant]
     Indication: DYSMENORRHOEA
     Dosage: 220-1000 MG
     Route: 048
     Dates: start: 20000502
  12. NAPROSYN [Concomitant]
     Indication: BACK PAIN
     Dosage: 220-1000 MG
     Route: 048
     Dates: start: 20000502
  13. NEURONTIN [Concomitant]
     Dosage: 900-1200 MG
     Route: 048
     Dates: start: 20000502
  14. NORETHINDRONE AND ETHINYL ESTRADIOL [Concomitant]
     Indication: ORAL CONTRACEPTION
     Dosage: 1/35 ONCE A DAY
     Route: 048
     Dates: start: 20010817
  15. GLUCOPHAGE [Concomitant]
     Route: 048
     Dates: start: 20010817
  16. TUMS [Concomitant]
     Indication: DYSPEPSIA
     Dosage: 2 TABLETS, 3 TO 4 HOURS
     Dates: start: 20010817
  17. PAXIL [Concomitant]
     Route: 048
     Dates: start: 20010107
  18. ENALAPRIL [Concomitant]
     Dates: start: 20020114

REACTIONS (5)
  - DIABETES MELLITUS [None]
  - DIABETIC KETOACIDOSIS [None]
  - HYPERGLYCAEMIA [None]
  - INSULIN-REQUIRING TYPE 2 DIABETES MELLITUS [None]
  - WEIGHT INCREASED [None]
